FAERS Safety Report 18916716 (Version 1)
Quarter: 2021Q1

REPORT INFORMATION
  Report Type: Spontaneous
  Country: US (occurrence: US)
  Receive Date: 20210219
  Receipt Date: 20210219
  Transmission Date: 20210420
  Serious: No
  Sender: FDA-Public Use
  Company Number: US-TAKEDA-2021TUS008928

PATIENT
  Sex: Male
  Weight: 90.7 kg

DRUGS (1)
  1. GAMMAGARD LIQUID [Suspect]
     Active Substance: HUMAN IMMUNOGLOBULIN G
     Indication: IMMUNODEFICIENCY COMMON VARIABLE
     Dosage: 45 GRAM, Q4WEEKS
     Route: 042
     Dates: start: 20150323

REACTIONS (1)
  - SARS-CoV-2 test positive [Unknown]
